FAERS Safety Report 12584042 (Version 1)
Quarter: 2016Q3

REPORT INFORMATION
  Report Type: Spontaneous
  Country: GB (occurrence: GB)
  Receive Date: 20160722
  Receipt Date: 20160722
  Transmission Date: 20161109
  Serious: Yes (Other)
  Sender: FDA-Public Use
  Company Number: GB-MYLANLABS-2016M1029628

PATIENT

DRUGS (3)
  1. OMEPRAZOLE MYLAN [Suspect]
     Active Substance: OMEPRAZOLE
     Indication: GASTROOESOPHAGEAL REFLUX DISEASE
     Dosage: YELLOW- ONE IN THE MORNING AND ONE IN THE EVENING
     Route: 048
     Dates: start: 201606
  2. OMEPRAZOLE MYLAN 20 MG GASTRO-RESISTANT CAPSULES, HARD [Suspect]
     Active Substance: OMEPRAZOLE
     Indication: DYSPEPSIA
     Dosage: PINK AND WHITE. ONE IN MORNING, ONE IN EVENING
     Route: 048
  3. SECURON [Suspect]
     Active Substance: VERAPAMIL HYDROCHLORIDE
     Indication: PRODUCT USED FOR UNKNOWN INDICATION
     Dosage: 120 MG
     Route: 065

REACTIONS (8)
  - Cardiac disorder [Unknown]
  - Myocardial infarction [Unknown]
  - Asthma [Unknown]
  - Product colour issue [None]
  - Incorrect dose administered [Unknown]
  - Fibromyalgia [Unknown]
  - Gastrooesophageal reflux disease [Unknown]
  - Dyspepsia [Unknown]
